FAERS Safety Report 4802431-4 (Version None)
Quarter: 2005Q4

REPORT INFORMATION
  Report Type: 
  Country: None (occurrence: None)
  Receive Date: 20051013
  Receipt Date: 20050930
  Transmission Date: 20060501
  Serious: Yes (Hospitalization, Other)
  Sender: FDA-Public Use
  Company Number: 2005136810

PATIENT
  Age: 58 Year
  Sex: Male

DRUGS (2)
  1. SILDENAFIL CITRATE [Suspect]
     Indication: ILL-DEFINED DISORDER
     Dosage: 25 MG (AS NECESSARY)
  2. WARFARIN SODIUM [Concomitant]

REACTIONS (2)
  - CEREBRAL HAEMORRHAGE [None]
  - HYPOAESTHESIA [None]
